FAERS Safety Report 6297120-6 (Version None)
Quarter: 2009Q3

REPORT INFORMATION
  Report Type: 
  Country: None (occurrence: None)
  Receive Date: 20090724
  Receipt Date: 20090519
  Transmission Date: 20100115
  Serious: Yes (Hospitalization)
  Sender: FDA-Public Use
  Company Number: 2008BI022237

PATIENT
  Age: 44 Year
  Sex: Female
  Weight: 73.4827 kg

DRUGS (1)
  1. TYSABRI [Suspect]
     Indication: MULTIPLE SCLEROSIS
     Dosage: 300 MG;QM;IV
     Route: 042
     Dates: start: 20071218, end: 20080601

REACTIONS (5)
  - BALANCE DISORDER [None]
  - EAR INFECTION [None]
  - HERPES ZOSTER [None]
  - PARAESTHESIA [None]
  - STRESS [None]
